FAERS Safety Report 9423852 (Version 2)
Quarter: 2013Q3

REPORT INFORMATION
  Report Type: Report from Study
  Country: CA (occurrence: CA)
  Receive Date: 20130729
  Receipt Date: 20130731
  Transmission Date: 20140515
  Serious: No
  Sender: FDA-Public Use
  Company Number: CA-ROCHE-1252724

PATIENT
  Sex: Male
  Weight: 88.5 kg

DRUGS (7)
  1. RITUXAN [Suspect]
     Indication: POLYMYOSITIS
     Dosage: FREQUENCY: DAY 1, DAY 15
     Route: 042
     Dates: start: 20120912
  2. RITUXAN [Suspect]
     Indication: RHEUMATOID ARTHRITIS
  3. PREDNISONE [Suspect]
     Indication: PREMEDICATION
     Route: 048
     Dates: start: 20120911
  4. PREDNISONE [Suspect]
     Route: 065
  5. DIPHENHYDRAMINE HCL [Concomitant]
     Indication: PREMEDICATION
     Route: 048
     Dates: start: 20120912
  6. ACETAMINOPHEN [Concomitant]
     Indication: PREMEDICATION
     Route: 048
     Dates: start: 20120912
  7. FOSAVANCE [Concomitant]
     Route: 048

REACTIONS (2)
  - Arthritis [Not Recovered/Not Resolved]
  - Arthralgia [Not Recovered/Not Resolved]
